FAERS Safety Report 17006061 (Version 1)
Quarter: 2019Q4

REPORT INFORMATION
  Report Type: Spontaneous
  Country: US (occurrence: US)
  Receive Date: 20191107
  Receipt Date: 20191107
  Transmission Date: 20200122
  Serious: Yes (Other)
  Sender: FDA-Public Use
  Company Number: US-SA-2019SA305375

PATIENT
  Age: 59 Year
  Sex: Female
  Weight: 72.56 kg

DRUGS (16)
  1. DEXAMETHASONE SODIUM PHOSPHATE. [Concomitant]
     Active Substance: DEXAMETHASONE SODIUM PHOSPHATE
  2. PEGFILGRASTIM [Concomitant]
     Active Substance: PEGFILGRASTIM
  3. ANASTROZOLE. [Concomitant]
     Active Substance: ANASTROZOLE
  4. TAXOTERE [Suspect]
     Active Substance: DOCETAXEL
     Dosage: 139 MG, Q3W
     Route: 042
     Dates: start: 20110506, end: 20110506
  5. METOPROLOL. [Concomitant]
     Active Substance: METOPROLOL
     Dosage: UNK
     Dates: start: 20040101
  6. ADVIL [IBUPROFEN] [Concomitant]
     Active Substance: IBUPROFEN
  7. HERCEPTIN [Concomitant]
     Active Substance: TRASTUZUMAB
     Indication: BREAST CANCER FEMALE
     Dosage: UNK
     Dates: start: 20110120, end: 20110506
  8. ATORVASTATIN [Concomitant]
     Active Substance: ATORVASTATIN
     Dosage: UNK
     Dates: start: 20040101
  9. ACETAMINOPHEN. [Concomitant]
     Active Substance: ACETAMINOPHEN
  10. CALCIUM [Concomitant]
     Active Substance: CALCIUM
  11. TAXOTERE [Suspect]
     Active Substance: DOCETAXEL
     Indication: BREAST CANCER FEMALE
     Dosage: 137 MG, Q3W
     Route: 042
     Dates: start: 20110120, end: 20110120
  12. FOSAMAX [Concomitant]
     Active Substance: ALENDRONATE SODIUM
  13. PARAPLATIN [Concomitant]
     Active Substance: CARBOPLATIN
     Indication: BREAST CANCER
     Dosage: UNK
     Dates: start: 20110120, end: 20110506
  14. LIPITOR [Concomitant]
     Active Substance: ATORVASTATIN CALCIUM
  15. DIPHENHYDRAMINE HCL [Concomitant]
     Active Substance: DIPHENHYDRAMINE HYDROCHLORIDE
  16. PALONOSETRON HCL [Concomitant]
     Active Substance: PALONOSETRON HYDROCHLORIDE

REACTIONS (1)
  - Alopecia [Recovering/Resolving]

NARRATIVE: CASE EVENT DATE: 20111106
